FAERS Safety Report 12559868 (Version 2)
Quarter: 2016Q3

REPORT INFORMATION
  Report Type: Spontaneous
  Country: FR (occurrence: FR)
  Receive Date: 20160715
  Receipt Date: 20160906
  Transmission Date: 20161109
  Serious: Yes (Hospitalization)
  Sender: FDA-Public Use
  Company Number: FR-PFIZER INC-2016342961

PATIENT
  Age: 4 Year
  Sex: Male

DRUGS (1)
  1. ORELOX [Suspect]
     Active Substance: CEFPODOXIME
     Indication: EAR INFECTION
     Dosage: UNK
     Route: 048
     Dates: start: 20160622, end: 20160624

REACTIONS (1)
  - Erythema multiforme [Recovering/Resolving]

NARRATIVE: CASE EVENT DATE: 20160624
